FAERS Safety Report 5474686-7 (Version None)
Quarter: 2007Q4

REPORT INFORMATION
  Report Type: 
  Country: None (occurrence: None)
  Receive Date: 20071002
  Receipt Date: 20070927
  Transmission Date: 20080405
  Serious: Yes (Life-Threatening)
  Sender: FDA-Public Use
  Company Number: MX-WYE-H00404007

PATIENT
  Sex: Female
  Weight: 48 kg

DRUGS (2)
  1. TYGACIL [Suspect]
     Indication: DIABETIC FOOT INFECTION
     Dosage: 150 MG DAILY
     Route: 042
     Dates: start: 20070925, end: 20070926
  2. INSULIN [Concomitant]
     Indication: DIABETES MELLITUS
     Dosage: UNKNOWN
     Dates: start: 19870101

REACTIONS (1)
  - CONVULSION [None]
